FAERS Safety Report 5486826-4 (Version None)
Quarter: 2007Q4

REPORT INFORMATION
  Report Type: 
  Country: None (occurrence: None)
  Receive Date: 20071012
  Receipt Date: 20071012
  Transmission Date: 20080405
  Serious: Yes (Life-Threatening, Hospitalization)
  Sender: FDA-Public Use
  Company Number: None

PATIENT
  Sex: Male
  Weight: 90.7194 kg

DRUGS (4)
  1. KALETRA [Suspect]
     Indication: ACQUIRED IMMUNODEFICIENCY SYNDROME
     Dosage: 2 CAPSULES TWICE DAILY PO
     Route: 048
  2. COMBIVIR [Concomitant]
  3. TYLENOL W/ CODEINE NO. 4 [Concomitant]
  4. RECOMBINANT FACTOR VIII [Concomitant]

REACTIONS (2)
  - CONDITION AGGRAVATED [None]
  - HEADACHE [None]
